FAERS Safety Report 11575712 (Version 1)
Quarter: 2015Q3

REPORT INFORMATION
  Report Type: Spontaneous
  Country: US (occurrence: None)
  Receive Date: 20150929
  Receipt Date: 20150929
  Transmission Date: 20151125
  Serious: Yes (Hospitalization)
  Sender: FDA-Public Use
  Company Number: None

PATIENT
  Age: 63 Year
  Sex: Male
  Weight: 123 kg

DRUGS (1)
  1. INTRON A [Suspect]
     Active Substance: INTERFERON ALFA-2B
     Dates: end: 20140801

REACTIONS (5)
  - Dyspnoea [None]
  - Pulmonary embolism [None]
  - Disease progression [None]
  - Bone pain [None]
  - Metastases to bone [None]

NARRATIVE: CASE EVENT DATE: 20150830
